FAERS Safety Report 20853685 (Version 1)
Quarter: 2022Q2

REPORT INFORMATION
  Report Type: Report from Study
  Country: CA (occurrence: CA)
  Receive Date: 20220520
  Receipt Date: 20220520
  Transmission Date: 20220721
  Serious: Yes (Other)
  Sender: FDA-Public Use
  Company Number: CA-JNJFOC-20220522843

PATIENT
  Age: 6 Year
  Sex: Male
  Weight: 19.4 kg

DRUGS (5)
  1. REMICADE [Suspect]
     Active Substance: INFLIXIMAB
     Indication: Crohn^s disease
     Dosage: FOR WEEK 2, 6 INDUCTION
     Route: 042
  2. REMICADE [Suspect]
     Active Substance: INFLIXIMAB
     Dosage: MAINTENANCE DOSING WHICH WAS MORE THEN 5 MG/KG ( WT = 19.4 KG) ; WEEK 0 ORDERED AT 100 MG (5 MG/KG R
     Route: 042
  3. REMICADE [Suspect]
     Active Substance: INFLIXIMAB
     Dosage: REQUESTING 150 MG FOR LOADING DOSE.
     Route: 042
  4. PREDNISOLONE [Concomitant]
     Active Substance: PREDNISOLONE
     Indication: Crohn^s disease
     Route: 048
     Dates: start: 20220430
  5. PREDNISONE [Concomitant]
     Active Substance: PREDNISONE
     Indication: Crohn^s disease
     Route: 048
     Dates: start: 20220430

REACTIONS (4)
  - Crohn^s disease [Unknown]
  - Steroid dependence [Unknown]
  - Off label use [Unknown]
  - Product use issue [Unknown]
